FAERS Safety Report 16095333 (Version 1)
Quarter: 2019Q1

REPORT INFORMATION
  Report Type: Other
  Country: CA (occurrence: CA)
  Receive Date: 20190320
  Receipt Date: 20190320
  Transmission Date: 20190418
  Serious: Yes (Life-Threatening, Other)
  Sender: FDA-Public Use
  Company Number: CA-BECTON DICKINSON-2019BDN00100

PATIENT
  Age: 14 Year
  Sex: Male
  Weight: 82 kg

DRUGS (5)
  1. CHLORHEXIDINE [Suspect]
     Active Substance: CHLORHEXIDINE
     Indication: INFECTION PROPHYLAXIS
     Route: 061
  2. TERBUTALINE [Concomitant]
     Active Substance: TERBUTALINE
  3. SYMBICORT 100 TURBUHALER [Concomitant]
  4. L-ARGININE [Suspect]
     Active Substance: ARGININE
     Indication: SOMATOTROPIN STIMULATION TEST
     Dosage: 30 G
     Route: 042
  5. CLONIDINE. [Suspect]
     Active Substance: CLONIDINE
     Indication: SOMATOTROPIN STIMULATION TEST
     Dosage: 200 MG, ONCE
     Route: 048

REACTIONS (6)
  - Wheezing [Recovered/Resolved]
  - Erythema [Recovered/Resolved]
  - Oral pruritus [Recovered/Resolved]
  - Dyspnoea [Recovered/Resolved]
  - Anaphylactic reaction [Recovered/Resolved]
  - Sneezing [Recovered/Resolved]
